FAERS Safety Report 20594131 (Version 1)
Quarter: 2022Q1

REPORT INFORMATION
  Report Type: Spontaneous
  Country: US (occurrence: US)
  Receive Date: 20220315
  Receipt Date: 20220315
  Transmission Date: 20220424
  Serious: Yes (Other)
  Sender: FDA-Public Use
  Company Number: US-SUN PHARMACEUTICAL INDUSTRIES LTD-2022R1-329762

PATIENT
  Age: 73 Year
  Sex: Female

DRUGS (1)
  1. OXYCODONE [Suspect]
     Active Substance: OXYCODONE
     Indication: Systemic lupus erythematosus
     Dosage: UNK (10 MG EVERY 6 H)
     Route: 065

REACTIONS (2)
  - Dysphagia [Recovering/Resolving]
  - Regurgitation [Recovering/Resolving]
